FAERS Safety Report 23084068 (Version 1)
Quarter: 2023Q4

REPORT INFORMATION
  Report Type: Spontaneous
  Country: US (occurrence: US)
  Receive Date: 20231019
  Receipt Date: 20231019
  Transmission Date: 20240110
  Serious: No
  Sender: FDA-Public Use
  Company Number: US-PFIZER INC-PV202300172069

PATIENT
  Age: 56 Year
  Sex: Male

DRUGS (1)
  1. INLYTA [Suspect]
     Active Substance: AXITINIB
     Indication: Neoplasm malignant
     Dosage: UNK
     Dates: end: 2023

REACTIONS (2)
  - Neoplasm progression [Unknown]
  - Oral pain [Unknown]
